FAERS Safety Report 5938657-6 (Version None)
Quarter: 2008Q4

REPORT INFORMATION
  Report Type: 
  Country: None (occurrence: None)
  Receive Date: 20081103
  Receipt Date: 20081021
  Transmission Date: 20090506
  Serious: Yes (Hospitalization)
  Sender: FDA-Public Use
  Company Number: US-ROCHE-412772

PATIENT
  Sex: Female
  Weight: 95.7 kg

DRUGS (5)
  1. CAPECITABINE [Suspect]
     Indication: BREAST CANCER
     Dosage: TWO WEEKS TREATMENT FOLLOWED BY ONE WEEK REST.
     Route: 048
     Dates: start: 20050614, end: 20050721
  2. CAPECITABINE [Suspect]
     Dosage: GIVEN FOR 14 DAYS OF 21 DAYS CYCLE. CYCLE NUMBER 6
     Route: 048
     Dates: start: 20050802
  3. DOCETAXEL [Suspect]
     Indication: BREAST CANCER
     Route: 042
     Dates: start: 20050614
  4. DOCETAXEL [Suspect]
     Route: 042
     Dates: end: 20050728
  5. DOCETAXEL [Suspect]
     Route: 042
     Dates: start: 20050802

REACTIONS (1)
  - NEPHROLITHIASIS [None]
